FAERS Safety Report 26118377 (Version 1)
Quarter: 2025Q4

REPORT INFORMATION
  Report Type: Spontaneous
  Country: US (occurrence: US)
  Receive Date: 20251203
  Receipt Date: 20251203
  Transmission Date: 20260118
  Serious: No
  Sender: INCYTE
  Company Number: US-EVENT-005046

PATIENT

DRUGS (1)
  1. OPZELURA [Suspect]
     Active Substance: RUXOLITINIB PHOSPHATE
     Indication: Granuloma annulare
     Dosage: UNK, BID

REACTIONS (6)
  - Granuloma annulare [Unknown]
  - Eye infection [Unknown]
  - Hyperhidrosis [Unknown]
  - Stress [Unknown]
  - Drug effective for unapproved indication [Unknown]
  - Off label use [Unknown]
